FAERS Safety Report 10582156 (Version 1)
Quarter: 2014Q4

REPORT INFORMATION
  Report Type: Spontaneous
  Country: US (occurrence: US)
  Receive Date: 20141113
  Receipt Date: 20141113
  Transmission Date: 20150529
  Serious: Yes (Life-Threatening, Hospitalization, Other)
  Sender: FDA-Public Use
  Company Number: US-CELGENE-USA-2014111590

PATIENT
  Age: 62 Year
  Sex: Male
  Weight: 68.1 kg

DRUGS (2)
  1. REVLIMID [Suspect]
     Active Substance: LENALIDOMIDE
     Indication: MANTLE CELL LYMPHOMA
     Route: 048
     Dates: start: 20140904, end: 20140924
  2. REVLIMID [Suspect]
     Active Substance: LENALIDOMIDE
     Route: 048
     Dates: start: 20141002, end: 20141022

REACTIONS (4)
  - Pyrexia [Unknown]
  - Skin exfoliation [Unknown]
  - Sepsis [Unknown]
  - Rash [Unknown]

NARRATIVE: CASE EVENT DATE: 20140919
